FAERS Safety Report 16345741 (Version 4)
Quarter: 2020Q2

REPORT INFORMATION
  Report Type: Other
  Country: BG (occurrence: BG)
  Receive Date: 20190523
  Receipt Date: 20200526
  Transmission Date: 20200713
  Serious: Yes (Hospitalization)
  Sender: FDA-Public Use
  Company Number: BG-CELLTRION INC.-2019BG021189

PATIENT

DRUGS (17)
  1. TAXOTERE [Suspect]
     Active Substance: DOCETAXEL
     Indication: HER2 POSITIVE BREAST CANCER
     Dosage: 80 MG, EVERY 4 WEEKS
     Route: 042
     Dates: start: 20180720, end: 20181114
  2. NEURONTIN [Concomitant]
     Active Substance: GABAPENTIN
     Indication: PAIN
     Dosage: UNK
     Route: 065
     Dates: start: 20190305, end: 20190315
  3. DEXKETOPROFEN [Concomitant]
     Active Substance: DEXKETOPROFEN
     Indication: PAIN
     Dosage: ONGOING = NOT CHECKED
     Route: 065
     Dates: start: 20190305, end: 20190315
  4. TRASTUZUMAB (UNKNOWN) [Suspect]
     Active Substance: TRASTUZUMAB
     Indication: HER2 POSITIVE BREAST CANCER
     Dosage: 300 MG, EVERY 4 WEEKS
     Route: 042
     Dates: start: 20180720, end: 20190211
  5. PREDNISOLON [PREDNISOLONE] [Concomitant]
     Active Substance: PREDNISOLONE
     Dosage: UNK
     Route: 065
     Dates: start: 20000615
  6. MORFIN [MORPHINE] [Concomitant]
     Active Substance: MORPHINE
     Indication: PAIN
     Dosage: ONGOING = NOT CHECKED
     Route: 065
     Dates: start: 20190305, end: 20190315
  7. DEGAN [Concomitant]
     Active Substance: METOCLOPRAMIDE HYDROCHLORIDE
     Indication: PAIN
     Dosage: UNK
     Route: 065
     Dates: start: 20190305, end: 20190315
  8. OLSART [Concomitant]
     Dosage: UNK
     Route: 065
     Dates: start: 20140615
  9. XELODA [Suspect]
     Active Substance: CAPECITABINE
     Indication: HER2 POSITIVE BREAST CANCER
     Dosage: 2500 MG PER DAY
     Route: 048
     Dates: start: 20181213, end: 20190211
  10. TRAMADOL. [Concomitant]
     Active Substance: TRAMADOL
     Dosage: UNK
     Route: 065
     Dates: start: 20180405, end: 20190305
  11. DEXAMETHASONE. [Concomitant]
     Active Substance: DEXAMETHASONE
     Indication: PAIN
     Dosage: UNK
     Route: 065
     Dates: end: 20190315
  12. DEGAN [Concomitant]
     Active Substance: METOCLOPRAMIDE HYDROCHLORIDE
     Indication: VOMITING
     Dosage: UNK
     Route: 065
     Dates: start: 20181116, end: 20181206
  13. BUPRENORPHINE. [Concomitant]
     Active Substance: BUPRENORPHINE
     Indication: PAIN
     Dosage: UNK
     Route: 065
     Dates: start: 20190305
  14. ASPIRIN [ACETYLSALICYLIC ACID] [Concomitant]
     Active Substance: ASPIRIN
     Dosage: UNK
     Route: 065
     Dates: start: 20140615
  15. MANITOL [Concomitant]
     Active Substance: MANNITOL
     Indication: PAIN
     Dosage: UNK
     Route: 065
     Dates: start: 20190305, end: 20190315
  16. FRAXIPARIN [Concomitant]
     Active Substance: NADROPARIN CALCIUM
     Indication: INGUINAL HERNIA
     Dosage: UNK
     Route: 065
     Dates: start: 20190211, end: 20190213
  17. METRONIDAZOLE. [Concomitant]
     Active Substance: METRONIDAZOLE
     Indication: INGUINAL HERNIA
     Dosage: ONGOING = NOT CHECKED
     Route: 065
     Dates: start: 20190211, end: 20190213

REACTIONS (3)
  - Product use issue [Unknown]
  - Weight decreased [Recovered/Resolved]
  - Inguinal hernia [Recovered/Resolved]

NARRATIVE: CASE EVENT DATE: 20181213
